FAERS Safety Report 9705750 (Version 2)
Quarter: 2015Q3

REPORT INFORMATION
  Report Type: Spontaneous
  Country: US (occurrence: US)
  Receive Date: 20131122
  Receipt Date: 20150803
  Transmission Date: 20151125
  Serious: No
  Sender: FDA-Public Use
  Company Number: US-GILEAD-2008-0018005

PATIENT
  Age: 75 Year
  Weight: 63.5 kg

DRUGS (8)
  1. LOTENSIN [Concomitant]
     Active Substance: BENAZEPRIL HYDROCHLORIDE
     Dosage: AS DIRECTED
     Route: 048
  2. ASPIRIN. [Concomitant]
     Active Substance: ASPIRIN
     Dosage: AS DIRECTED
     Route: 048
  3. ZETIA [Concomitant]
     Active Substance: EZETIMIBE
     Dosage: AS DIRECTED
     Route: 048
  4. OXYGEN. [Concomitant]
     Active Substance: OXYGEN
     Dosage: AS DIRECTED
  5. ALBUTEROL. [Concomitant]
     Active Substance: ALBUTEROL
     Dosage: AS DIRECTED
  6. ADVAIR HFA [Concomitant]
     Active Substance: FLUTICASONE PROPIONATE\SALMETEROL XINAFOATE
     Dosage: AS DIRECTED
  7. CELEXA [Concomitant]
     Active Substance: CITALOPRAM HYDROBROMIDE
     Dosage: AS DIRECTED
     Route: 048
  8. LETAIRIS [Suspect]
     Active Substance: AMBRISENTAN
     Indication: PULMONARY ARTERIAL HYPERTENSION
     Route: 048
     Dates: start: 20080708

REACTIONS (1)
  - Gravitational oedema [None]
